FAERS Safety Report 5079904-5 (Version None)
Quarter: 2006Q3

REPORT INFORMATION
  Report Type: 
  Country: None (occurrence: None)
  Receive Date: 20060720
  Receipt Date: 20050705
  Transmission Date: 20061208
  Serious: Yes (Hospitalization)
  Sender: FDA-Public Use
  Company Number: 2005100082

PATIENT
  Age: 43 Year
  Sex: Female

DRUGS (16)
  1. CELEBREX [Suspect]
     Indication: ILL-DEFINED DISORDER
     Dosage: (200 MG),ORAL
     Route: 048
     Dates: start: 20020505, end: 20050308
  2. PREDNISONE TAB [Concomitant]
  3. COZAAR [Concomitant]
  4. FOLIC ACID [Concomitant]
  5. NEXIUM [Concomitant]
  6. LEVAQUIN [Concomitant]
  7. PENICILLIN-VK [Concomitant]
  8. HYDROXYCHLOROQUINE SULFATE [Concomitant]
  9. AMILORIDE HCL W/HYDROCHLOROTHIAZIDE (AMILORIDE HYDROCHLORIDE, HYDROCHL [Concomitant]
  10. BENZONATATE [Concomitant]
  11. ALL OTHER THERAPEUTIC PRODUCTS (ALL OTHER THERAPEUTIC PRODUCTS) [Concomitant]
  12. AMOXICILLIN W/CLAVULANATE POTASSIUM (AMOXICILLIN, CLAVULANATE POTASSIU [Concomitant]
  13. CEPHALEXIN [Concomitant]
  14. CHLORHEXIDINE (CHLORHEXIDINE) [Concomitant]
  15. MOMETASONE (MOMETASONE) [Concomitant]
  16. METHOTREXATE [Concomitant]

REACTIONS (7)
  - ANTINUCLEAR ANTIBODY POSITIVE [None]
  - BETA GLOBULIN INCREASED [None]
  - CEREBROVASCULAR ACCIDENT [None]
  - GLOBULINS INCREASED [None]
  - PROTEIN TOTAL INCREASED [None]
  - RED BLOOD CELL SEDIMENTATION RATE INCREASED [None]
  - WHITE BLOOD CELL COUNT DECREASED [None]
